FAERS Safety Report 10052159 (Version 1)
Quarter: 2014Q2

REPORT INFORMATION
  Report Type: Spontaneous
  Country: TW (occurrence: TW)
  Receive Date: 20140402
  Receipt Date: 20140402
  Transmission Date: 20141212
  Serious: Yes (Other)
  Sender: FDA-Public Use
  Company Number: TW-ROCHE-1371445

PATIENT
  Age: 29 Year
  Sex: Female

DRUGS (9)
  1. HERCEPTIN [Suspect]
     Indication: BREAST CANCER METASTATIC
     Route: 065
     Dates: start: 201012, end: 201202
  2. HERCEPTIN [Suspect]
     Route: 065
     Dates: start: 201205
  3. XELODA [Suspect]
     Indication: BREAST CANCER METASTATIC
     Route: 065
     Dates: start: 201307
  4. PACLITAXEL [Concomitant]
     Route: 065
     Dates: start: 201012
  5. CISPLATIN [Concomitant]
     Indication: BREAST CANCER
     Route: 065
     Dates: start: 201012
  6. TAMOXIFEN [Concomitant]
     Indication: BREAST CANCER
     Route: 065
     Dates: start: 201107
  7. LAPATINIB [Concomitant]
     Indication: BREAST CANCER METASTATIC
     Route: 065
     Dates: start: 201210
  8. NAVELBINE [Concomitant]
     Indication: BREAST CANCER METASTATIC
     Route: 065
     Dates: start: 201303
  9. TRASTUZUMAB EMTANSINE [Concomitant]
     Route: 065
     Dates: start: 201312, end: 201403

REACTIONS (7)
  - Breast cancer recurrent [Unknown]
  - Metastases to lung [Unknown]
  - Metastases to breast [Unknown]
  - Metastases to lymph nodes [Unknown]
  - Metastases to liver [Unknown]
  - Disease progression [Unknown]
  - Left ventricular failure [Recovering/Resolving]
